FAERS Safety Report 4334053-6 (Version None)
Quarter: 2004Q2

REPORT INFORMATION
  Report Type: 
  Country: None (occurrence: None)
  Receive Date: 20040402
  Receipt Date: 20040323
  Transmission Date: 20050107
  Serious: Yes (Other)
  Sender: FDA-Public Use
  Company Number: 2004021348

PATIENT
  Age: 52 Year
  Sex: Female

DRUGS (10)
  1. NEURONTIN [Suspect]
     Indication: EPILEPSY
     Dosage: 1200 MG (TID), ORAL
     Route: 048
     Dates: start: 20030101
  2. LAMOTRIGINE [Concomitant]
  3. THEOPHYLLINE [Concomitant]
  4. BUDESONIDE (BUDESONIDE) [Concomitant]
  5. SALBUTAMOL (SALBUTAMOL) [Concomitant]
  6. CITALOPRAM HYDROBROMIDE (CITALOPRAM HYDROBROMIDE) [Concomitant]
  7. WARFARIN SODIUM [Concomitant]
  8. TRIMETHOPRIM [Concomitant]
  9. CIPROFLOXACIN [Concomitant]
  10. POTASSIUM CHLORIDE [Concomitant]

REACTIONS (7)
  - CONFUSIONAL STATE [None]
  - FEELING ABNORMAL [None]
  - PYREXIA [None]
  - SLEEP TALKING [None]
  - SOMNOLENCE [None]
  - VOMITING [None]
  - WHEELCHAIR USER [None]
